FAERS Safety Report 6888083-0 (Version None)
Quarter: 2010Q3

REPORT INFORMATION
  Report Type: 
  Country: None (occurrence: None)
  Receive Date: 20100730
  Receipt Date: 20100719
  Transmission Date: 20110219
  Serious: Yes (Other)
  Sender: FDA-Public Use
  Company Number: US-PFIZER INC-2010090446

PATIENT
  Age: 65 Year
  Sex: Male

DRUGS (2)
  1. GABAPENTIN [Suspect]
     Indication: HYPOAESTHESIA
     Dosage: UNK
  2. GABAPENTIN [Suspect]
     Dosage: 300 MG, 3X/DAY

REACTIONS (1)
  - MYASTHENIA GRAVIS [None]
